FAERS Safety Report 16778129 (Version 4)
Quarter: 2020Q4

REPORT INFORMATION
  Report Type: Spontaneous
  Country: US (occurrence: US)
  Receive Date: 20190905
  Receipt Date: 20201211
  Transmission Date: 20210113
  Serious: No
  Sender: FDA-Public Use
  Company Number: US-BIOMARINAP-US-2019-125475

PATIENT
  Age: 11 Year
  Sex: Male

DRUGS (1)
  1. KUVAN [Suspect]
     Active Substance: SAPROPTERIN DIHYDROCHLORIDE
     Indication: PHENYLKETONURIA
     Dosage: ,
     Route: 048
     Dates: start: 20140124

REACTIONS (2)
  - Abdominal discomfort [Unknown]
  - Product commingling [Unknown]

NARRATIVE: CASE EVENT DATE: 20190826
